FAERS Safety Report 5654448-8 (Version None)
Quarter: 2008Q1

REPORT INFORMATION
  Report Type: 
  Country: None (occurrence: None)
  Receive Date: 20080305
  Receipt Date: 20080219
  Transmission Date: 20080703
  Serious: Yes (Other)
  Sender: FDA-Public Use
  Company Number: 231700J08USA

PATIENT
  Age: 47 Year
  Sex: Male
  Weight: 70.3075 kg

DRUGS (2)
  1. REBIF [Suspect]
     Indication: MULTIPLE SCLEROSIS
     Dosage: 44 MCG, 3IN 1 WEEKS, SUBCUTAEOUS
     Route: 058
     Dates: start: 20030716
  2. ADVIL LIQUID GELS (IBUPROFEN) [Concomitant]

REACTIONS (1)
  - ROTATOR CUFF SYNDROME [None]
